FAERS Safety Report 7939083-0 (Version None)
Quarter: 2011Q4

REPORT INFORMATION
  Report Type: 
  Country: None (occurrence: None)
  Receive Date: 20111124
  Receipt Date: 20111121
  Transmission Date: 20120403
  Serious: Yes (Other)
  Sender: FDA-Public Use
  Company Number: BE-PFIZER INC-2011284506

PATIENT
  Age: 34 Year
  Sex: Female
  Weight: 65 kg

DRUGS (3)
  1. ACETAMINOPHEN [Suspect]
     Dosage: 20 G
  2. VENLAFAXINE HCL [Suspect]
     Dosage: 7.5 G
  3. VENLAFAXINE HCL [Suspect]
     Dosage: 3.75 G

REACTIONS (9)
  - CARDIOMYOPATHY ACUTE [None]
  - PNEUMONIA [None]
  - SEROTONIN SYNDROME [None]
  - OVERDOSE [None]
  - RENAL FAILURE ACUTE [None]
  - DEPRESSED LEVEL OF CONSCIOUSNESS [None]
  - MYDRIASIS [None]
  - CONVULSION [None]
  - RHABDOMYOLYSIS [None]
